FAERS Safety Report 25245748 (Version 1)
Quarter: 2025Q2

REPORT INFORMATION
  Report Type: Spontaneous
  Country: US (occurrence: None)
  Receive Date: 20250428
  Receipt Date: 20250428
  Transmission Date: 20250716
  Serious: Yes (Life-Threatening, Hospitalization)
  Sender: FDA-CTU
  Company Number: None

PATIENT
  Age: 69 Year
  Sex: Male
  Weight: 88.9 kg

DRUGS (1)
  1. AMIODARONE HYDROCHLORIDE [Suspect]
     Active Substance: AMIODARONE HYDROCHLORIDE
     Indication: Atrial fibrillation
     Dosage: 400 MG 3 TIMES A DAY ORAL
     Route: 048
     Dates: start: 20250416, end: 20250418

REACTIONS (9)
  - Atrial fibrillation [None]
  - Drug ineffective [None]
  - Chest pain [None]
  - Dyspnoea [None]
  - Jaundice [None]
  - Liver injury [None]
  - Serum ferritin increased [None]
  - Encephalopathy [None]
  - Paranoia [None]

NARRATIVE: CASE EVENT DATE: 20250418
